FAERS Safety Report 13900427 (Version 1)
Quarter: 2017Q3

REPORT INFORMATION
  Report Type: Report from Study
  Country: None (occurrence: US)
  Receive Date: 20170824
  Receipt Date: 20170824
  Transmission Date: 20171127
  Serious: Yes (Hospitalization, Other)
  Sender: FDA-Public Use
  Company Number: US-ABBVIE-17K-163-1986364-00

PATIENT
  Sex: Female
  Weight: 49.49 kg

DRUGS (1)
  1. HUMIRA [Suspect]
     Active Substance: ADALIMUMAB
     Indication: CROHN^S DISEASE
     Route: 058
     Dates: start: 201703, end: 201704

REACTIONS (6)
  - Pneumonia [Unknown]
  - Drug ineffective [Recovering/Resolving]
  - Gastrointestinal inflammation [Unknown]
  - Pleural effusion [Recovering/Resolving]
  - Rectal haemorrhage [Unknown]
  - Proctitis [Unknown]

NARRATIVE: CASE EVENT DATE: 2017
